FAERS Safety Report 9719834 (Version 3)
Quarter: 2014Q1

REPORT INFORMATION
  Report Type: Report from Study
  Country: JP (occurrence: JP)
  Receive Date: 20131128
  Receipt Date: 20140213
  Transmission Date: 20141002
  Serious: Yes (Other)
  Sender: FDA-Public Use
  Company Number: JP-JNJFOC-20131114525

PATIENT
  Age: 72 Year
  Sex: Male

DRUGS (8)
  1. SIMPONI [Suspect]
     Indication: RHEUMATOID ARTHRITIS
     Route: 058
     Dates: start: 20130704, end: 20130704
  2. SIMPONI [Suspect]
     Indication: RHEUMATOID ARTHRITIS
     Route: 058
     Dates: start: 20130606, end: 20130606
  3. SIMPONI [Suspect]
     Indication: RHEUMATOID ARTHRITIS
     Route: 058
     Dates: start: 20130308, end: 20130508
  4. RHEUMATREX [Suspect]
     Indication: RHEUMATOID ARTHRITIS
     Route: 065
     Dates: start: 20070817, end: 20130731
  5. CELECOX [Concomitant]
     Indication: RHEUMATOID ARTHRITIS
     Route: 048
     Dates: end: 20130829
  6. FOLIAMIN [Concomitant]
     Indication: PROPHYLAXIS
     Route: 065
  7. REBAMIPIDE [Concomitant]
     Indication: PROPHYLAXIS
     Route: 065
  8. LYRICA [Concomitant]
     Indication: CARPAL TUNNEL SYNDROME
     Route: 048

REACTIONS (1)
  - Pneumonia [Recovering/Resolving]
